FAERS Safety Report 8192956-9 (Version None)
Quarter: 2012Q1

REPORT INFORMATION
  Report Type: 
  Country: None (occurrence: None)
  Receive Date: 20120308
  Receipt Date: 20120301
  Transmission Date: 20120608
  Serious: Yes (Other)
  Sender: FDA-Public Use
  Company Number: DE-BRISTOL-MYERS SQUIBB COMPANY-16386922

PATIENT
  Age: 85 Year
  Sex: Female

DRUGS (8)
  1. ORENCIA [Suspect]
     Indication: POLYARTHRITIS
     Route: 042
     Dates: start: 20120120, end: 20120120
  2. OLMESARTAN MEDOXOMIL AND HYDROCHLOROTHIZIDE [Concomitant]
     Dosage: 1DF: 20/12.5MG
  3. ENBREL [Concomitant]
     Route: 058
  4. ASPIRIN [Concomitant]
     Dosage: 1DF: 100 UNITS NOS
  5. PREDNISONE TAB [Concomitant]
  6. OSSOFORTIN FORTE [Concomitant]
     Dosage: CHEWABLE TABLETS  1DF:1TAB
  7. LEVOTHYROXINE SODIUM [Concomitant]
     Dosage: EUTHYROX 75 TABS
  8. ZOCOR [Concomitant]

REACTIONS (1)
  - SKIN HAEMORRHAGE [None]
